FAERS Safety Report 6679184-0 (Version None)
Quarter: 2010Q2

REPORT INFORMATION
  Report Type: 
  Country: None (occurrence: None)
  Receive Date: 20100413
  Receipt Date: 20100408
  Transmission Date: 20101027
  Serious: Yes (Hospitalization)
  Sender: FDA-Public Use
  Company Number: FR-SANOFI-AVENTIS-200912547FR

PATIENT
  Age: 78 Year
  Sex: Female

DRUGS (8)
  1. LITHIUM CARBONATE [Suspect]
     Dosage: DOSE UNIT: 400 MG
     Route: 048
     Dates: end: 20090227
  2. FUROSEMIDE [Suspect]
     Dosage: DOSE UNIT: 20 MG
     Route: 048
     Dates: start: 20090101
  3. AMLODIPINE/VALSARTAN [Concomitant]
     Route: 048
  4. LEVOTHYROX [Concomitant]
     Indication: HYPOTHYROIDISM
     Dosage: DOSE UNIT: 25 UG
     Route: 048
  5. STRESAM [Concomitant]
     Indication: ANXIETY
     Route: 048
  6. FOVAVANCE [Concomitant]
     Indication: OSTEOPOROSIS
     Route: 048
  7. TRIVASTAL [Concomitant]
     Indication: TREMOR
     Dosage: DOSE UNIT: 25 MG
     Route: 048
     Dates: start: 20090101, end: 20090227
  8. MODOPAR [Concomitant]
     Indication: TREMOR
     Dosage: DOSE UNIT: 62.5 MG
     Route: 048
     Dates: start: 20090101, end: 20090227

REACTIONS (3)
  - ACCIDENTAL OVERDOSE [None]
  - DRUG INTERACTION [None]
  - TREMOR [None]
